FAERS Safety Report 14753924 (Version 1)
Quarter: 2018Q2

REPORT INFORMATION
  Report Type: Spontaneous
  Country: US (occurrence: US)
  Receive Date: 20180412
  Receipt Date: 20180412
  Transmission Date: 20180711
  Serious: No
  Sender: FDA-Public Use
  Company Number: US-SEBELA IRELAND LIMITED-2018SEB00051

PATIENT
  Age: 60 Year
  Sex: Female

DRUGS (1)
  1. AZATHIOPRINE. [Suspect]
     Active Substance: AZATHIOPRINE
     Dosage: UNK

REACTIONS (4)
  - Rash [Unknown]
  - Product substitution issue [Unknown]
  - Vomiting [Unknown]
  - Diarrhoea [Unknown]
